FAERS Safety Report 6732312-0 (Version None)
Quarter: 2010Q2

REPORT INFORMATION
  Report Type: 
  Country: None (occurrence: None)
  Receive Date: 20100519
  Receipt Date: 20100504
  Transmission Date: 20101027
  Serious: Yes (Hospitalization)
  Sender: FDA-Public Use
  Company Number: AU-TYCO HEALTHCARE/MALLINCKRODT-T201001182

PATIENT

DRUGS (4)
  1. NALTREXONE HYDROCHLORIDE [Suspect]
     Indication: DRUG DETOXIFICATION
     Dosage: 100-150MG
     Route: 048
  2. NALOXONE [Suspect]
     Indication: DRUG DETOXIFICATION
     Dosage: 0.2 MG/KG, IV OVER ONE HOUR
     Route: 042
  3. MIDAZOLAM HCL [Suspect]
     Indication: ANAESTHESIA
     Dosage: UNK
  4. PROPOFOL [Suspect]
     Indication: ANAESTHESIA
     Dosage: UNK

REACTIONS (1)
  - RESPIRATORY FAILURE [None]
